FAERS Safety Report 17859794 (Version 5)
Quarter: 2021Q1

REPORT INFORMATION
  Report Type: Spontaneous
  Country: US (occurrence: US)
  Receive Date: 20200604
  Receipt Date: 20210310
  Transmission Date: 20210419
  Serious: Yes (Hospitalization)
  Sender: FDA-Public Use
  Company Number: US-PFIZER INC-2020058819

PATIENT
  Age: 54 Year
  Sex: Male

DRUGS (3)
  1. INLYTA [Suspect]
     Active Substance: AXITINIB
     Dosage: 3 MG, 1X/DAY
     Route: 048
  2. INLYTA [Suspect]
     Active Substance: AXITINIB
     Dosage: 3 MG, DAILY
     Route: 048
  3. INLYTA [Suspect]
     Active Substance: AXITINIB
     Indication: RENAL CANCER
     Dosage: 5 MG, 2X/DAY

REACTIONS (6)
  - Dyspnoea [Unknown]
  - Weight decreased [Unknown]
  - Blood pressure increased [Unknown]
  - Palmar-plantar erythrodysaesthesia syndrome [Recovering/Resolving]
  - Fatigue [Unknown]
  - Ageusia [Recovering/Resolving]
